FAERS Safety Report 15189973 (Version 2)
Quarter: 2018Q3

REPORT INFORMATION
  Report Type: Spontaneous
  Country: NO (occurrence: NO)
  Receive Date: 20180724
  Receipt Date: 20180807
  Transmission Date: 20181010
  Serious: Yes (Hospitalization, Other)
  Sender: FDA-Public Use
  Company Number: NO-PFIZER INC-2018292268

PATIENT
  Age: 42 Year
  Sex: Female

DRUGS (13)
  1. LYRICA [Suspect]
     Active Substance: PREGABALIN
     Indication: NEURALGIA
     Dosage: 150 MG, 3X/DAY
     Route: 048
     Dates: start: 20171226, end: 20180213
  2. METHOTREXATE. [Concomitant]
     Active Substance: METHOTREXATE
  3. VIMOVO [Concomitant]
     Active Substance: ESOMEPRAZOLE MAGNESIUM\NAPROXEN
     Dosage: ESOMEPRAZOLE 20MG/NAPROXEN 500MG
  4. PARACET /00020001/ [Concomitant]
     Active Substance: ACETAMINOPHEN
  5. FOLIC ACID. [Concomitant]
     Active Substance: FOLIC ACID
  6. ACLASTA [Concomitant]
     Active Substance: ZOLEDRONIC ACID
  7. LYRICA [Suspect]
     Active Substance: PREGABALIN
     Indication: PHANTOM PAIN
     Dosage: 100 MG, 3X/DAY
     Route: 048
     Dates: start: 20171222, end: 20171225
  8. CALCIGRAN FORTE [Concomitant]
     Active Substance: CALCIUM CARBONATE\CHOLECALCIFEROL
     Dosage: CHOLECALCIFEROL 800 IU/CALCIUM CARBONATE 1000 MG
  9. VITAMIN B12 [Concomitant]
     Active Substance: CYANOCOBALAMIN
  10. GABAPENTIN. [Suspect]
     Active Substance: GABAPENTIN
     Indication: PHANTOM PAIN
     Dosage: 400 MG, 3X/DAY (EVERY 8 HOURS)
     Route: 048
     Dates: start: 201711, end: 20171222
  11. SOBRIL [Concomitant]
     Active Substance: OXAZEPAM
  12. OXYCODONE [Concomitant]
     Active Substance: OXYCODONE
  13. PREDNISOLONE. [Concomitant]
     Active Substance: PREDNISOLONE

REACTIONS (3)
  - Hypokinesia [Recovering/Resolving]
  - Muscle rigidity [Recovering/Resolving]
  - Musculoskeletal stiffness [Recovering/Resolving]

NARRATIVE: CASE EVENT DATE: 201711
